FAERS Safety Report 15346458 (Version 1)
Quarter: 2018Q3

REPORT INFORMATION
  Report Type: Spontaneous
  Country: US (occurrence: US)
  Receive Date: 20180904
  Receipt Date: 20180904
  Transmission Date: 20181010
  Serious: No
  Sender: FDA-Public Use
  Company Number: US-PFIZER INC-2018352549

PATIENT
  Age: 56 Year
  Sex: Female
  Weight: 82 kg

DRUGS (1)
  1. LYRICA [Suspect]
     Active Substance: PREGABALIN
     Indication: FIBROMYALGIA
     Dosage: 100 MG, 2X/DAY (TAKES 2 CAPSULES TWICE DAILY)
     Route: 048

REACTIONS (4)
  - Drug effect incomplete [Unknown]
  - Insomnia [Unknown]
  - Memory impairment [Unknown]
  - Distractibility [Unknown]
